FAERS Safety Report 10503957 (Version 1)
Quarter: 2014Q4

REPORT INFORMATION
  Report Type: Spontaneous
  Country: US (occurrence: None)
  Receive Date: 20141007
  Receipt Date: 20141007
  Transmission Date: 20150528
  Serious: Yes (Life-Threatening)
  Sender: FDA-Public Use
  Company Number: None

PATIENT
  Age: 42 Year
  Sex: Female
  Weight: 142 kg

DRUGS (1)
  1. RITUXAN [Suspect]
     Active Substance: RITUXIMAB
     Indication: RHEUMATOID ARTHRITIS
     Dosage: 1000 MG EVERY 2WK X 2 DOSE INTRAVENOUS
     Route: 042
     Dates: start: 20141006, end: 20141006

REACTIONS (4)
  - Hypotension [None]
  - Rash [None]
  - Flushing [None]
  - Nausea [None]
